FAERS Safety Report 6263156-4 (Version None)
Quarter: 2009Q3

REPORT INFORMATION
  Report Type: 
  Country: None (occurrence: None)
  Receive Date: 20090708
  Receipt Date: 20090708
  Transmission Date: 20100115
  Serious: No
  Sender: FDA-Public Use
  Company Number: None

PATIENT
  Sex: Female
  Weight: 81.6475 kg

DRUGS (3)
  1. PLAVIX [Suspect]
     Indication: CORONARY ARTERIAL STENT INSERTION
     Dosage: 1 - 75MG 1 A DAY
  2. CRESTOR [Concomitant]
  3. METOPROLOL TARTRATE [Concomitant]

REACTIONS (1)
  - DYSGEUSIA [None]
